FAERS Safety Report 19294068 (Version 1)
Quarter: 2021Q2

REPORT INFORMATION
  Report Type: Spontaneous
  Country: US (occurrence: US)
  Receive Date: 20210524
  Receipt Date: 20210524
  Transmission Date: 20210717
  Serious: Yes (Hospitalization, Other)
  Sender: FDA-Public Use
  Company Number: None

PATIENT
  Age: 20 Year
  Sex: Male
  Weight: 128.25 kg

DRUGS (4)
  1. RISPERIDONE 1 MG TABLET?GENERIC FOR RISPERDAL [Suspect]
     Active Substance: RISPERIDONE
     Indication: DEPRESSION
     Dosage: ?          QUANTITY:1 TABLET(S);?
     Route: 048
     Dates: start: 20210427, end: 20210517
  2. RISPERIDONE 1 MG TABLET?GENERIC FOR RISPERDAL [Suspect]
     Active Substance: RISPERIDONE
     Indication: AFFECTIVE DISORDER
     Dosage: ?          QUANTITY:1 TABLET(S);?
     Route: 048
     Dates: start: 20210427, end: 20210517
  3. RISPERIDONE 1 MG TABLET?GENERIC FOR RISPERDAL [Suspect]
     Active Substance: RISPERIDONE
     Indication: POST-TRAUMATIC STRESS DISORDER
     Dosage: ?          QUANTITY:1 TABLET(S);?
     Route: 048
     Dates: start: 20210427, end: 20210517
  4. RISPERIDONE 1 MG TABLET?GENERIC FOR RISPERDAL [Suspect]
     Active Substance: RISPERIDONE
     Indication: ANXIETY
     Dosage: ?          QUANTITY:1 TABLET(S);?
     Route: 048
     Dates: start: 20210427, end: 20210517

REACTIONS (3)
  - Erection increased [None]
  - Peyronie^s disease [None]
  - Painful erection [None]

NARRATIVE: CASE EVENT DATE: 20210517
